FAERS Safety Report 15940239 (Version 2)
Quarter: 2019Q2

REPORT INFORMATION
  Report Type: Spontaneous
  Country: JP (occurrence: JP)
  Receive Date: 20190208
  Receipt Date: 20190529
  Transmission Date: 20190711
  Serious: Yes (Hospitalization, Other)
  Sender: FDA-Public Use
  Company Number: JP-JNJFOC-20190209432

PATIENT
  Age: 77 Year
  Sex: Male
  Weight: 54.1 kg

DRUGS (10)
  1. XARELTO [Suspect]
     Active Substance: RIVAROXABAN
     Indication: PULMONARY EMBOLISM
     Route: 048
     Dates: start: 20190213, end: 20190213
  2. XARELTO [Suspect]
     Active Substance: RIVAROXABAN
     Indication: ATRIAL FIBRILLATION
     Route: 048
     Dates: end: 20190129
  3. XARELTO [Suspect]
     Active Substance: RIVAROXABAN
     Indication: PULMONARY EMBOLISM
     Route: 048
     Dates: end: 20190129
  4. XARELTO [Suspect]
     Active Substance: RIVAROXABAN
     Indication: ATRIAL FIBRILLATION
     Route: 048
     Dates: start: 20190213, end: 20190213
  5. MERISLON [Concomitant]
     Active Substance: BETAHISTINE MESILATE
     Indication: BALANCE DISORDER
     Route: 065
     Dates: end: 20190129
  6. ADALAT [Concomitant]
     Active Substance: NIFEDIPINE
     Indication: HYPERTENSION
     Route: 065
     Dates: end: 20190129
  7. XARELTO [Suspect]
     Active Substance: RIVAROXABAN
     Indication: ATRIAL FIBRILLATION
     Route: 048
     Dates: start: 20190212, end: 20190212
  8. MERISLON [Concomitant]
     Active Substance: BETAHISTINE MESILATE
     Indication: DIZZINESS
     Route: 065
     Dates: end: 20190129
  9. LEXOTAN [Concomitant]
     Active Substance: BROMAZEPAM
     Indication: NEUROSIS
     Route: 065
     Dates: end: 20190129
  10. XARELTO [Suspect]
     Active Substance: RIVAROXABAN
     Indication: PULMONARY EMBOLISM
     Route: 048
     Dates: start: 20190212, end: 20190212

REACTIONS (4)
  - Pulmonary embolism [Recovered/Resolved]
  - Pneumonia aspiration [Unknown]
  - Deep vein thrombosis [Recovered/Resolved]
  - Putamen haemorrhage [Recovered/Resolved]

NARRATIVE: CASE EVENT DATE: 20190129
